FAERS Safety Report 21034397 (Version 1)
Quarter: 2022Q3

REPORT INFORMATION
  Report Type: Spontaneous
  Country: FR (occurrence: FR)
  Receive Date: 20220701
  Receipt Date: 20220701
  Transmission Date: 20221027
  Serious: Yes (Hospitalization)
  Sender: FDA-Public Use
  Company Number: None

PATIENT
  Age: 78 Year
  Sex: Male

DRUGS (12)
  1. BISOPROLOL FUMARATE [Suspect]
     Active Substance: BISOPROLOL FUMARATE
     Indication: Infarction
     Dosage: BISOPROLOL (FUMARATE DE), UNIT DOSE : 2.5 MG , FREQUENCY TIME : 1 DAYS
     Route: 048
  2. POLYETHYLENE GLYCOLS [Suspect]
     Active Substance: POLYETHYLENE GLYCOLS
     Indication: Constipation
     Dosage: MACROGOL (DISTEARATE DE) , UNIT DOSE : 10 GRAM , FREQUENCY TIME : 1 DAYS
     Route: 048
  3. PANTOPRAZOLE [Suspect]
     Active Substance: PANTOPRAZOLE
     Indication: Prophylaxis against gastrointestinal ulcer
     Dosage: UNIT DOSE : 20 MG , FREQUENCY TIME : 1 DAYS
     Route: 048
  4. ZOLOFT [Suspect]
     Active Substance: SERTRALINE HYDROCHLORIDE
     Indication: Depression
     Dosage: UNIT DOSE : 25 MG , FREQUENCY TIME : 1 DAYS
     Route: 048
     Dates: start: 202109
  5. EUPANTOL [Suspect]
     Active Substance: PANTOPRAZOLE SODIUM
     Indication: Prophylaxis against gastrointestinal ulcer
     Dosage: UNIT DOSE : 20 MG , FREQUENCY TIME : 1 DAYS
     Route: 048
  6. EZETIMIBE [Suspect]
     Active Substance: EZETIMIBE
     Indication: Dyslipidaemia
     Dosage: UNIT DOSE : 10 MG , FREQUENCY TIME : 1 DAYS
     Route: 048
  7. BENSERAZIDE HYDROCHLORIDE\LEVODOPA [Suspect]
     Active Substance: BENSERAZIDE HYDROCHLORIDE\LEVODOPA
     Indication: Parkinson^s disease
     Dosage: UNIT DOSE : 125 MG , FREQUENCY TIME : 1 DAYS
     Route: 048
     Dates: start: 202106
  8. SINEMET [Suspect]
     Active Substance: CARBIDOPA\LEVODOPA
     Indication: Parkinson^s disease
     Dosage: UNIT DOSE : 750MG , FREQUENCY TIME : 1 DAYS
     Route: 048
     Dates: start: 202106
  9. KARDEGIC [Suspect]
     Active Substance: ASPIRIN DL-LYSINE
     Indication: Myocardial ischaemia
     Dosage: UNIT DOSE : 75 MG , FREQUENCY TIME : 1 DAYS
     Route: 048
  10. FOLIC ACID [Suspect]
     Active Substance: FOLIC ACID
     Indication: Product used for unknown indication
     Dosage: ACIDE FOLIQUE , UNIT DOSE : 5 MG , FREQUENCY TIME : 1 DAYS
     Route: 048
  11. FUROSEMIDE [Suspect]
     Active Substance: FUROSEMIDE
     Indication: Hypertension
     Dosage: UNIT DOSE : 20 MG , FREQUENCY TIME : 2 DAYS
     Route: 048
  12. CALCIUM CARBONATE\CHOLECALCIFEROL [Suspect]
     Active Substance: CALCIUM CARBONATE\CHOLECALCIFEROL
     Indication: Product used for unknown indication
     Dosage: UNIT DOSE : 500 MG , FREQUENCY TIME : 1 DAYS
     Route: 048

REACTIONS (1)
  - Eczema [Recovering/Resolving]

NARRATIVE: CASE EVENT DATE: 20220301
